FAERS Safety Report 21749471 (Version 2)
Quarter: 2023Q2

REPORT INFORMATION
  Report Type: Spontaneous
  Country: GR (occurrence: GR)
  Receive Date: 20221219
  Receipt Date: 20230411
  Transmission Date: 20230722
  Serious: Yes (Life-Threatening, Hospitalization, Other)
  Sender: FDA-Public Use
  Company Number: GR-OPUSMATERIA-2022003

PATIENT
  Age: 41 Year
  Sex: Female
  Weight: 51 kg

DRUGS (7)
  1. ONDANSETRON [Suspect]
     Active Substance: ONDANSETRON
     Indication: Nausea
     Dosage: 4 MILLIGRAM,(TOTAL)(SLOW BOLUS)
     Route: 042
  2. ONDANSETRON [Suspect]
     Active Substance: ONDANSETRON
     Indication: Procedural nausea
  3. ESMOLOL [Suspect]
     Active Substance: ESMOLOL HYDROCHLORIDE
     Indication: Supraventricular tachycardia
     Dosage: UNK (DRIP)
     Route: 065
  4. ADENOSINE [Suspect]
     Active Substance: ADENOSINE
     Indication: Supraventricular tachycardia
     Dosage: 6 MILLIGRAM (INTRAVENOUS BOLUS)
     Route: 042
  5. ADENOSINE [Suspect]
     Active Substance: ADENOSINE
     Dosage: 12 MILLIGRAM (2 IV BOLUSES)
     Route: 042
  6. VERAPAMIL [Suspect]
     Active Substance: VERAPAMIL HYDROCHLORIDE
     Indication: Supraventricular tachycardia
     Dosage: 10 MILLIGRAM
     Route: 042
  7. MORPHINE [Concomitant]
     Active Substance: MORPHINE
     Indication: Procedural pain
     Dosage: UNK (RECEIVED INCREMENTALLY 4MG OF DOSE)
     Route: 042

REACTIONS (3)
  - Electrocardiogram QRS complex shortened [Recovered/Resolved]
  - Supraventricular tachycardia [Recovered/Resolved]
  - Drug ineffective [Unknown]
